FAERS Safety Report 6388304-7 (Version None)
Quarter: 2009Q4

REPORT INFORMATION
  Report Type: 
  Country: None (occurrence: None)
  Receive Date: 20091005
  Receipt Date: 20090924
  Transmission Date: 20100525
  Serious: Yes (Death)
  Sender: FDA-Public Use
  Company Number: JP-PFIZER INC-2009274122

PATIENT
  Age: 45 Year

DRUGS (6)
  1. AMLODIPINE [Suspect]
     Dosage: 5 MG, 1X/DAY
     Route: 048
     Dates: start: 20090825
  2. ZOLOFT [Concomitant]
     Route: 048
  3. ZOLOFT [Concomitant]
     Route: 048
  4. EBASTEL [Concomitant]
     Dosage: UNK
     Route: 048
     Dates: start: 20090909, end: 20090911
  5. ALOSENN [Concomitant]
     Route: 048
  6. MEILAX [Concomitant]

REACTIONS (1)
  - DEATH [None]
